FAERS Safety Report 14237126 (Version 4)
Quarter: 2018Q3

REPORT INFORMATION
  Report Type: Report from Study
  Country: CA (occurrence: CA)
  Receive Date: 20171129
  Receipt Date: 20180725
  Transmission Date: 20181010
  Serious: Yes (Hospitalization)
  Sender: FDA-Public Use
  Company Number: CA-INCYTE CORPORATION-2017IN010023

PATIENT

DRUGS (2)
  1. JAKAVI [Suspect]
     Active Substance: RUXOLITINIB
     Dosage: 25 MG, BID
     Route: 048
  2. JAKAVI [Suspect]
     Active Substance: RUXOLITINIB
     Indication: MYELOFIBROSIS
     Dosage: 20 MG, BID
     Route: 048
     Dates: start: 20171007

REACTIONS (5)
  - Drug ineffective [Unknown]
  - Contusion [Unknown]
  - Bacterial test positive [Recovering/Resolving]
  - Diarrhoea [Unknown]
  - Mouth ulceration [Unknown]

NARRATIVE: CASE EVENT DATE: 20171028
